FAERS Safety Report 6841560-0 (Version None)
Quarter: 2010Q3

REPORT INFORMATION
  Report Type: 
  Country: None (occurrence: None)
  Receive Date: 20100714
  Receipt Date: 20070711
  Transmission Date: 20110219
  Serious: No
  Sender: FDA-Public Use
  Company Number: US-PFIZER INC-2007055968

PATIENT
  Sex: Female
  Weight: 77.3 kg

DRUGS (7)
  1. CHANTIX [Suspect]
     Indication: SMOKING CESSATION THERAPY
     Dates: start: 20070702
  2. REMICADE [Concomitant]
  3. GAMMAGARD [Concomitant]
  4. FENTANYL [Concomitant]
  5. HYDROCODONE [Concomitant]
  6. NEXIUM [Concomitant]
  7. WARFARIN SODIUM [Concomitant]

REACTIONS (3)
  - ABDOMINAL PAIN UPPER [None]
  - NAUSEA [None]
  - VOMITING PROJECTILE [None]
